FAERS Safety Report 4627547-7 (Version None)
Quarter: 2005Q2

REPORT INFORMATION
  Report Type: 
  Country: None (occurrence: None)
  Receive Date: 20050405
  Receipt Date: 20050321
  Transmission Date: 20051028
  Serious: Yes (Other)
  Sender: FDA-Public Use
  Company Number: 2005020457

PATIENT
  Age: 84 Year
  Sex: Female
  Weight: 61.2356 kg

DRUGS (6)
  1. CELEBREX [Suspect]
     Indication: ARTHRITIS
     Dosage: 200 MG (200 MG, 1 IN 1 D), ORAL
     Route: 048
     Dates: start: 20020415, end: 20041025
  2. LEVOTHYROXINE SODIUM [Concomitant]
  3. RABEPRAZOLE SODIUM [Concomitant]
  4. SERTRALINE HCL [Concomitant]
  5. ALENDRONATE SODIUM [Concomitant]
  6. ATORVASTATIN (ATORVASTATIN) [Concomitant]

REACTIONS (6)
  - ANGINA PECTORIS [None]
  - CARDIAC DISORDER [None]
  - CARDIAC STRESS TEST ABNORMAL [None]
  - CAROTID ARTERY DISEASE [None]
  - CHEST PAIN [None]
  - ISCHAEMIA [None]
